FAERS Safety Report 6905447-7 (Version None)
Quarter: 2010Q3

REPORT INFORMATION
  Report Type: 
  Country: None (occurrence: None)
  Receive Date: 20100804
  Receipt Date: 20100722
  Transmission Date: 20110219
  Serious: Yes (Other)
  Sender: FDA-Public Use
  Company Number: PHFR2010GB00664

PATIENT
  Sex: Female

DRUGS (3)
  1. TRILEPTAL [Suspect]
     Indication: EPILEPSY
     Dosage: 150 MG, UNK
  2. TRILEPTAL [Suspect]
     Dosage: 300 MG, UNK
  3. TEGRETOL [Suspect]
     Indication: EPILEPSY

REACTIONS (2)
  - ACNE [None]
  - MOOD ALTERED [None]
